FAERS Safety Report 20627846 (Version 1)
Quarter: 2022Q1

REPORT INFORMATION
  Report Type: Spontaneous
  Country: US (occurrence: None)
  Receive Date: 20220323
  Receipt Date: 20220323
  Transmission Date: 20220423
  Serious: Yes (Other)
  Sender: FDA-Public Use
  Company Number: None

PATIENT
  Age: 77 Year
  Sex: Male

DRUGS (2)
  1. AMOXICILLIN AND CLAVULANATE POTASSIUM [Suspect]
     Active Substance: AMOXICILLIN\CLAVULANATE POTASSIUM
     Indication: Product used for unknown indication
     Dosage: FREQUENCY : TWICE A DAY;?
     Route: 048
     Dates: start: 20220321, end: 20220323
  2. Amoxicillin/ Clavulanate potassium [Concomitant]

REACTIONS (2)
  - Gastritis [None]
  - Diarrhoea [None]

NARRATIVE: CASE EVENT DATE: 20220323
